FAERS Safety Report 6134477-0 (Version None)
Quarter: 2009Q1

REPORT INFORMATION
  Report Type: 
  Country: None (occurrence: None)
  Receive Date: 20090327
  Receipt Date: 20090324
  Transmission Date: 20090719
  Serious: Yes (Life-Threatening, Hospitalization)
  Sender: FDA-Public Use
  Company Number: ES-PFIZER INC-2009187830

PATIENT

DRUGS (6)
  1. CELEBREX [Suspect]
     Dosage: UNK
     Route: 048
     Dates: start: 20071101, end: 20080609
  2. ALDACTONE [Interacting]
     Dosage: UNK
     Route: 048
     Dates: start: 20070901, end: 20080609
  3. METFORMIN HYDROCHLORIDE [Concomitant]
     Route: 048
     Dates: start: 20020101
  4. GABAPENTIN [Concomitant]
     Route: 048
     Dates: start: 20080507
  5. CHLORTHALIDONE [Concomitant]
     Dosage: UNK
     Route: 048
     Dates: start: 20070801, end: 20080607
  6. OXYCONTIN [Concomitant]
     Route: 048
     Dates: start: 20080507, end: 20080610

REACTIONS (3)
  - DRUG INTERACTION [None]
  - HYPERKALAEMIA [None]
  - VENTRICULAR TACHYCARDIA [None]
